FAERS Safety Report 4778039-6 (Version None)
Quarter: 2005Q3

REPORT INFORMATION
  Report Type: 
  Country: None (occurrence: None)
  Receive Date: 20050926
  Receipt Date: 20050915
  Transmission Date: 20060218
  Serious: Yes (Other)
  Sender: FDA-Public Use
  Company Number: PHBS2005US13708

PATIENT
  Sex: Male
  Weight: 2380 kg

DRUGS (2)
  1. METOPROLOL [Suspect]
     Route: 064
  2. HEPARIN [Suspect]
     Route: 064

REACTIONS (2)
  - DRUG EXPOSURE DURING PREGNANCY [None]
  - PREMATURE BABY [None]
